FAERS Safety Report 4263732-4 (Version None)
Quarter: 2004Q1

REPORT INFORMATION
  Report Type: 
  Country: None (occurrence: None)
  Receive Date: 20040102
  Receipt Date: 20031218
  Transmission Date: 20041129
  Serious: Yes (Death, Life-Threatening, Other)
  Sender: FDA-Public Use
  Company Number: USA030946621

PATIENT
  Age: 51 Year
  Sex: Male
  Weight: 136 kg

DRUGS (5)
  1. HUMATROPE [Suspect]
     Indication: HYPOPITUITARISM
  2. PREDNISONE [Concomitant]
  3. DOSTINEX [Concomitant]
  4. TESTOSTERONE [Concomitant]
  5. CALCIUM [Concomitant]

REACTIONS (12)
  - BLOOD MAGNESIUM DECREASED [None]
  - BLOOD UREA DECREASED [None]
  - BRAIN NEOPLASM [None]
  - CARDIOVASCULAR DISORDER [None]
  - GRAND MAL CONVULSION [None]
  - HEPATIC CIRRHOSIS [None]
  - HEPATIC CONGESTION [None]
  - HYPERGLYCAEMIA [None]
  - HYPONATRAEMIA [None]
  - PCO2 DECREASED [None]
  - PLATELET COUNT DECREASED [None]
  - RENAL FAILURE [None]
